FAERS Safety Report 4341999-1 (Version None)
Quarter: 2004Q2

REPORT INFORMATION
  Report Type: 
  Country: None (occurrence: None)
  Receive Date: 20040415
  Receipt Date: 20040331
  Transmission Date: 20050107
  Serious: Yes (Death)
  Sender: FDA-Public Use
  Company Number: US_020382487

PATIENT
  Age: 71 Year
  Sex: Male

DRUGS (2)
  1. GEMCITABINE HYDROCHLORIDE-IV-GEMCITABINE) [Suspect]
     Indication: NON-SMALL CELL LUNG CANCER METASTATIC
     Dosage: 1 G/M2 OTHER
     Route: 050
  2. CISPLATIN [Concomitant]

REACTIONS (2)
  - INTERSTITIAL LUNG DISEASE [None]
  - PULMONARY TOXICITY [None]
